FAERS Safety Report 20751974 (Version 2)
Quarter: 2022Q2

REPORT INFORMATION
  Report Type: Report from Study
  Country: AR (occurrence: AR)
  Receive Date: 20220426
  Receipt Date: 20220512
  Transmission Date: 20220721
  Serious: Yes (Death, Hospitalization, Other)
  Sender: FDA-Public Use
  Company Number: AR-TAKEDA-2022TUS027139

PATIENT
  Age: 13 Year
  Sex: Male

DRUGS (19)
  1. IDURSULFASE [Suspect]
     Active Substance: IDURSULFASE
     Indication: Mucopolysaccharidosis II
     Dosage: 0.5 MILLIGRAM/KILOGRAM, 1/WEEK
     Route: 042
  2. AMOXICILLIN\CLAVULANIC ACID [Concomitant]
     Active Substance: AMOXICILLIN\CLAVULANIC ACID
     Indication: Antibiotic therapy
     Dosage: UNK
     Route: 048
     Dates: end: 201402
  3. AMOXICILLIN\CLAVULANIC ACID [Concomitant]
     Active Substance: AMOXICILLIN\CLAVULANIC ACID
     Indication: Otitis media acute
     Dosage: UNK
     Route: 048
     Dates: start: 20140417, end: 20140427
  4. AMOXICILLIN\CLAVULANIC ACID [Concomitant]
     Active Substance: AMOXICILLIN\CLAVULANIC ACID
     Dosage: UNK
     Route: 048
     Dates: start: 20140822, end: 20140901
  5. AMOXICILLIN\CLAVULANIC ACID [Concomitant]
     Active Substance: AMOXICILLIN\CLAVULANIC ACID
     Dosage: UNK
     Route: 048
     Dates: start: 20150127, end: 20150205
  6. METHYLPHENIDATE [Concomitant]
     Active Substance: METHYLPHENIDATE
     Indication: Psychomotor hyperactivity
     Dosage: UNK
     Route: 048
     Dates: start: 20140530, end: 20150529
  7. CLARITHROMYCIN [Concomitant]
     Active Substance: CLARITHROMYCIN
     Indication: Antibiotic therapy
     Dosage: UNK
     Route: 048
     Dates: start: 20140628, end: 20140704
  8. CLARITHROMYCIN [Concomitant]
     Active Substance: CLARITHROMYCIN
     Indication: Pneumonitis
     Dosage: UNK
     Route: 048
     Dates: start: 20150420, end: 20150430
  9. CLARITHROMYCIN [Concomitant]
     Active Substance: CLARITHROMYCIN
     Indication: Bronchospasm
     Dosage: UNK
     Route: 048
     Dates: start: 20150706, end: 20150716
  10. ALBUTEROL [Concomitant]
     Active Substance: ALBUTEROL
     Indication: Bronchospasm
     Dosage: UNK
     Route: 050
     Dates: start: 20140928, end: 20140929
  11. ALBUTEROL [Concomitant]
     Active Substance: ALBUTEROL
     Indication: Pneumonitis
     Dosage: UNK
     Route: 050
     Dates: start: 20150406, end: 20150413
  12. ALBUTEROL [Concomitant]
     Active Substance: ALBUTEROL
     Dosage: UNK
     Route: 050
     Dates: start: 20150420, end: 20150427
  13. ALBUTEROL [Concomitant]
     Active Substance: ALBUTEROL
     Dosage: UNK
     Route: 050
     Dates: start: 20150706, end: 20150713
  14. ALBUTEROL [Concomitant]
     Active Substance: ALBUTEROL
     Dosage: UNK
     Route: 050
     Dates: end: 201709
  15. AMOXICILLIN [Concomitant]
     Active Substance: AMOXICILLIN
     Indication: Otitis media acute
     Dosage: UNK
     Route: 048
     Dates: start: 20150102, end: 20150109
  16. AMOXICILLIN [Concomitant]
     Active Substance: AMOXICILLIN
     Indication: Bronchospasm
     Dosage: UNK
     Route: 048
     Dates: start: 20150406, end: 20150416
  17. RISPERIDONE [Concomitant]
     Active Substance: RISPERIDONE
     Indication: Behaviour disorder
     Dosage: UNK
     Route: 048
     Dates: start: 20150601
  18. ARIPIPRAZOLE [Concomitant]
     Active Substance: ARIPIPRAZOLE
     Indication: Behaviour disorder
     Dosage: UNK
     Route: 048
     Dates: start: 20150601
  19. MEPREDNISONE [Concomitant]
     Active Substance: MEPREDNISONE
     Indication: Pneumonitis
     Dosage: UNK
     Route: 048
     Dates: start: 201209

REACTIONS (2)
  - Cardio-respiratory arrest [Fatal]
  - Oxygen saturation decreased [Fatal]

NARRATIVE: CASE EVENT DATE: 20220324
